FAERS Safety Report 26116329 (Version 1)
Quarter: 2025Q4

REPORT INFORMATION
  Report Type: Spontaneous
  Country: GB (occurrence: GB)
  Receive Date: 20251203
  Receipt Date: 20251203
  Transmission Date: 20260117
  Serious: Yes (Other)
  Sender: BAXTER
  Company Number: None

PATIENT
  Age: 53 Year
  Sex: Female
  Weight: 52 kg

DRUGS (1)
  1. METRONIDAZOLE [Suspect]
     Active Substance: METRONIDAZOLE
     Indication: Dental care
     Dosage: 400MG 3 X PER DAY
     Route: 065
     Dates: start: 20251125, end: 20251128

REACTIONS (5)
  - Migraine [Recovered/Resolved]
  - Eye pain [Recovered/Resolved]
  - Depressed mood [Recovered/Resolved]
  - Decreased appetite [Recovered/Resolved]
  - Nausea [Recovered/Resolved]

NARRATIVE: CASE EVENT DATE: 20251128
